FAERS Safety Report 6756979-6 (Version None)
Quarter: 2010Q2

REPORT INFORMATION
  Report Type: 
  Country: None (occurrence: None)
  Receive Date: 20100603
  Receipt Date: 20100603
  Transmission Date: 20101027
  Serious: Yes (Hospitalization)
  Sender: FDA-Public Use
  Company Number: None

PATIENT
  Sex: Female

DRUGS (2)
  1. BUPROPION HCL [Suspect]
     Indication: DEPRESSION
     Dosage: 150MG BID PO
     Route: 048
     Dates: start: 20090630, end: 20100601
  2. TRAMADOL HCL [Suspect]
     Indication: ARTHRALGIA
     Dosage: 50MG QID PO
     Route: 048
     Dates: start: 20100513, end: 20100521

REACTIONS (1)
  - CONVULSION [None]
